FAERS Safety Report 8114805-7 (Version None)
Quarter: 2012Q1

REPORT INFORMATION
  Report Type: 
  Country: None (occurrence: None)
  Receive Date: 20120131
  Receipt Date: 20120113
  Transmission Date: 20120608
  Serious: Yes (Hospitalization)
  Sender: FDA-Public Use
  Company Number: 2012SP003543

PATIENT
  Sex: Male

DRUGS (1)
  1. CEDAX [Suspect]

REACTIONS (1)
  - ANAPHYLACTIC REACTION [None]
